FAERS Safety Report 6741078-X (Version None)
Quarter: 2010Q2

REPORT INFORMATION
  Report Type: 
  Country: None (occurrence: None)
  Receive Date: 20100525
  Receipt Date: 20100525
  Transmission Date: 20101027
  Serious: Yes (Life-Threatening, Hospitalization, Congenital Anomaly)
  Sender: FDA-Public Use
  Company Number: None

PATIENT
  Sex: Female
  Weight: 3.1752 kg

DRUGS (1)
  1. EFFEXOR XR [Suspect]
     Indication: DEPRESSION
     Dosage: 37.5 MG 1 PER DAY PO
     Route: 048
     Dates: start: 20070701, end: 20090701

REACTIONS (4)
  - CONGENITAL ANOMALY [None]
  - MATERNAL DRUGS AFFECTING FOETUS [None]
  - PRODUCT LABEL ISSUE [None]
  - TRANSPOSITION OF THE GREAT VESSELS [None]
